FAERS Safety Report 7407546 (Version 3)
Quarter: 2018Q3

REPORT INFORMATION
  Report Type: Spontaneous
  Country: DE (occurrence: DE)
  Receive Date: 20100602
  Receipt Date: 20180820
  Transmission Date: 20181010
  Serious: Yes (Hospitalization)
  Sender: FDA-Public Use
  Company Number: GXKR2010DE06026

PATIENT
  Age: 71 Year
  Sex: Female
  Weight: 78 kg

DRUGS (6)
  1. BISOPROLOL [Suspect]
     Active Substance: BISOPROLOL
     Dosage: 6 MG, QD (1 DAY)
     Route: 048
     Dates: start: 20091203
  2. FALITHROM [Suspect]
     Active Substance: PHENPROCOUMON
     Indication: ATRIAL FIBRILLATION
     Dosage: 0.5?1?0.5?1?0.5?1?0.5 WEEKLY
     Route: 048
     Dates: start: 20091203
  3. BISOPROLOL [Suspect]
     Active Substance: BISOPROLOL
     Indication: ATRIAL FIBRILLATION
     Dosage: 2.5 MG, QD (1 DAY) (DAILY DOSE: 5 MG EVERY DAY)
     Route: 048
     Dates: start: 20091203
  4. FALITHROM [Suspect]
     Active Substance: PHENPROCOUMON
     Dosage: 15 MG, QW (DAILY DOSE: 15 MG MILLIGRAM(S) EVERY WEEK)
     Route: 048
     Dates: start: 20100416, end: 20100504
  5. BISOPROLOL [Suspect]
     Active Substance: BISOPROLOL
     Dosage: 5 MG, UNK
     Route: 048
     Dates: start: 20091203
  6. ACTONEL [Suspect]
     Active Substance: RISEDRONATE SODIUM
     Indication: OSTEOPOROSIS
     Dosage: 35 MG, QW (1 WEEK)
     Route: 048
     Dates: start: 2008, end: 20100505

REACTIONS (12)
  - Acute hepatic failure [Not Recovered/Not Resolved]
  - Heart rate increased [Unknown]
  - Jaundice [Not Recovered/Not Resolved]
  - Drug-induced liver injury [Recovered/Resolved]
  - Prothrombin time prolonged [Recovered/Resolved]
  - Performance status decreased [Not Recovered/Not Resolved]
  - Overdose [Unknown]
  - Faeces pale [Not Recovered/Not Resolved]
  - Abdominal distension [Not Recovered/Not Resolved]
  - Vomiting [Not Recovered/Not Resolved]
  - Decreased appetite [Not Recovered/Not Resolved]
  - General physical condition abnormal [Unknown]

NARRATIVE: CASE EVENT DATE: 20100504
